FAERS Safety Report 6421474-0 (Version None)
Quarter: 2009Q4

REPORT INFORMATION
  Report Type: 
  Country: None (occurrence: None)
  Receive Date: 20091030
  Receipt Date: 20091022
  Transmission Date: 20100525
  Serious: Yes (Hospitalization)
  Sender: FDA-Public Use
  Company Number: CH-PFIZER INC-2009287074

PATIENT
  Age: 64 Year

DRUGS (10)
  1. ARTHROTEC [Suspect]
     Dosage: 1 DF, 1X/DAY
     Route: 048
     Dates: end: 20090630
  2. AMLODIN [Concomitant]
     Dosage: 5 MG, 1X/DAY
     Route: 048
     Dates: end: 20090630
  3. SITAGLIPTIN PHOSPHATE [Concomitant]
     Dosage: 100 MG, 1X/DAY
     Route: 048
     Dates: end: 20090630
  4. ATACAND [Concomitant]
     Dosage: 6 MG, 1X/DAY
     Route: 048
     Dates: end: 20090630
  5. CEFEPIME [Concomitant]
     Dosage: 2 G, 1X/DAY
     Route: 042
     Dates: start: 20090629, end: 20090701
  6. KONAKION [Concomitant]
     Dosage: 10 MG, UNK
     Route: 042
     Dates: start: 20090630, end: 20090630
  7. PARACETAMOL [Concomitant]
     Dosage: 500 MG, 1X/DAY
     Route: 042
     Dates: start: 20090630, end: 20090701
  8. SUCRALFATE [Concomitant]
     Dosage: 1 DF, 2X/DAY
     Route: 048
     Dates: start: 20090630, end: 20090701
  9. INSULIN [Concomitant]
     Route: 058
  10. NEXIUM [Concomitant]
     Dosage: 40 MG, 1X/DAY
     Dates: start: 20090629

REACTIONS (4)
  - ALTERED STATE OF CONSCIOUSNESS [None]
  - HEPATIC ENZYME INCREASED [None]
  - HEPATITIS [None]
  - PANCYTOPENIA [None]
